FAERS Safety Report 6427195-2 (Version None)
Quarter: 2009Q4

REPORT INFORMATION
  Report Type: 
  Country: None (occurrence: None)
  Receive Date: 20091104
  Receipt Date: 20091023
  Transmission Date: 20100525
  Serious: Yes (Other)
  Sender: FDA-Public Use
  Company Number: JP-PFIZER INC-2009288134

PATIENT
  Age: 70 Year
  Sex: Male

DRUGS (3)
  1. ADRIACIN [Suspect]
     Indication: EXTRANODAL MARGINAL ZONE B-CELL LYMPHOMA (MALT TYPE)
     Dosage: IJ (INJECTION)
  2. ENDOXAN [Suspect]
     Indication: EXTRANODAL MARGINAL ZONE B-CELL LYMPHOMA (MALT TYPE)
     Dosage: IJ (INJECTION)
  3. ONCOVIN [Suspect]
     Indication: EXTRANODAL MARGINAL ZONE B-CELL LYMPHOMA (MALT TYPE)
     Dosage: IJ (INJECTION)

REACTIONS (2)
  - LARGE INTESTINE CARCINOMA [None]
  - NEOPLASM MALIGNANT [None]
